FAERS Safety Report 6913803-6 (Version None)
Quarter: 2010Q3

REPORT INFORMATION
  Report Type: 
  Country: None (occurrence: None)
  Receive Date: 20100809
  Receipt Date: 20100805
  Transmission Date: 20110219
  Serious: Yes (Life-Threatening)
  Sender: FDA-Public Use
  Company Number: DE-BRISTOL-MYERS SQUIBB COMPANY-14971311

PATIENT
  Age: 71 Year
  Sex: Male
  Weight: 77 kg

DRUGS (10)
  1. ONGLYZA [Suspect]
     Indication: DIABETES MELLITUS
     Route: 048
     Dates: start: 20100111, end: 20100119
  2. ALDACTONE [Concomitant]
     Dosage: 1 DF=25 UNIT NOS
     Dates: start: 20100111
  3. NOVODIGAL [Concomitant]
     Dates: start: 20100111
  4. MARCUMAR [Concomitant]
     Dates: start: 20100111
  5. CARVEDILOL [Concomitant]
     Dosage: 1 DF=25 UNIT NOS
     Dates: start: 20100111
  6. FUROSEMIDE [Concomitant]
     Dates: start: 20100111
  7. TAMSULOSIN HCL [Concomitant]
     Dosage: 1 DF=.4 UNIT NOS
     Dates: start: 20100111
  8. ALLOPURINOL [Concomitant]
     Dosage: HCT 25 MG.1 DF= 300 UNIT NOS AND ALSO TAKEN 25MG
     Dates: start: 20100111
  9. OLMESARTAN MEDOXOMIL [Concomitant]
     Dosage: 1 DF=20MG/5MG
     Dates: start: 20100111
  10. AMLODIPINE [Concomitant]
     Dosage: 1 DF=20MG/5MG
     Dates: start: 20100111

REACTIONS (1)
  - HYPOGLYCAEMIA [None]
